FAERS Safety Report 7024543-X (Version None)
Quarter: 2010Q4

REPORT INFORMATION
  Report Type: 
  Country: None (occurrence: None)
  Receive Date: 20101001
  Receipt Date: 20100924
  Transmission Date: 20110411
  Serious: Yes (Other)
  Sender: FDA-Public Use
  Company Number: D0068966A

PATIENT
  Sex: Female

DRUGS (1)
  1. ALTARGO [Suspect]
     Route: 061

REACTIONS (3)
  - CHILLS [None]
  - HEPATIC ENZYME INCREASED [None]
  - MALAISE [None]
